FAERS Safety Report 5082351-3 (Version None)
Quarter: 2006Q3

REPORT INFORMATION
  Report Type: 
  Country: None (occurrence: None)
  Receive Date: 20060817
  Receipt Date: 20060807
  Transmission Date: 20061208
  Serious: Yes (Hospitalization, Other)
  Sender: FDA-Public Use
  Company Number: FR-BRISTOL-MYERS SQUIBB COMPANY-13470315

PATIENT
  Age: 29 Year
  Sex: Male

DRUGS (4)
  1. REYATAZ [Suspect]
     Route: 048
     Dates: start: 20051215
  2. VIDEX [Concomitant]
  3. EPIVIR [Concomitant]
  4. NORVIR [Concomitant]

REACTIONS (3)
  - BLOOD BILIRUBIN UNCONJUGATED INCREASED [None]
  - BLOOD CREATINE PHOSPHOKINASE INCREASED [None]
  - DENTAL CARIES [None]
